FAERS Safety Report 8036525-X (Version None)
Quarter: 2012Q1

REPORT INFORMATION
  Report Type: 
  Country: None (occurrence: None)
  Receive Date: 20120111
  Receipt Date: 20120103
  Transmission Date: 20120608
  Serious: Yes (Hospitalization)
  Sender: FDA-Public Use
  Company Number: US-JNJFOC-20120100844

PATIENT
  Age: 58 Year
  Sex: Male
  Weight: 87.8 kg

DRUGS (4)
  1. LORAZEPAM [Concomitant]
  2. ACETAMINOPHEN [Suspect]
     Route: 065
  3. ACETAMINOPHEN [Suspect]
     Indication: PRODUCT USED FOR UNKNOWN INDICATION
     Dosage: UNKNOWN QUANTITY
     Route: 065
     Dates: start: 20111223
  4. METOPROLOL SUCCINATE [Concomitant]

REACTIONS (4)
  - INTENTIONAL SELF-INJURY [None]
  - VOMITING [None]
  - INTENTIONAL OVERDOSE [None]
  - ABDOMINAL DISCOMFORT [None]
